FAERS Safety Report 9745804 (Version 3)
Quarter: 2013Q4

REPORT INFORMATION
  Report Type: Spontaneous
  Country: US (occurrence: US)
  Receive Date: 20131211
  Receipt Date: 20131211
  Transmission Date: 20140711
  Serious: Yes (Other)
  Sender: FDA-Public Use
  Company Number: CHPA2013US016340

PATIENT
  Age: 89 Year
  Sex: Female

DRUGS (3)
  1. VOLTAREN GEL [Suspect]
     Indication: BACK PAIN
     Dosage: 2 G, BID
     Route: 061
     Dates: start: 20131025
  2. VOLTAREN GEL [Suspect]
     Indication: OFF LABEL USE
  3. CYCLOBENZAPRINE [Concomitant]
     Dosage: UNK, UNK
     Route: 065

REACTIONS (3)
  - Back pain [Recovering/Resolving]
  - Drug administered at inappropriate site [Unknown]
  - Drug ineffective for unapproved indication [Unknown]
